FAERS Safety Report 13143471 (Version 2)
Quarter: 2017Q1

REPORT INFORMATION
  Report Type: Spontaneous
  Country: GR (occurrence: GR)
  Receive Date: 20170124
  Receipt Date: 20170224
  Transmission Date: 20170428
  Serious: Yes (Death, Life-Threatening, Other)
  Sender: FDA-Public Use
  Company Number: GR-009507513-1701GRC010304

PATIENT
  Age: 80 Year
  Sex: Female
  Weight: 90 kg

DRUGS (10)
  1. LADOSE [Concomitant]
     Active Substance: FLUOXETINE HYDROCHLORIDE
     Dosage: 1X1
  2. CLOVELEN (CLOPIDOGREL BESYLATE) [Concomitant]
     Dosage: 75MG X 1
  3. PIPERACILLIN AND TAZOBACTAM [Concomitant]
     Active Substance: PIPERACILLIN SODIUM\TAZOBACTAM SODIUM
     Dosage: 4.5GX 3
  4. COAPROVEL [Concomitant]
     Active Substance: HYDROCHLOROTHIAZIDE\IRBESARTAN
     Dosage: 150 X12.5 MG
  5. PREZOLON [Concomitant]
     Active Substance: PREDNISOLONE
     Dosage: 7.5 X 1MG
  6. MEROPENEM. [Concomitant]
     Active Substance: MEROPENEM
     Dosage: 1G X 3
  7. SIVEXTRO [Suspect]
     Active Substance: TEDIZOLID PHOSPHATE
     Indication: SOFT TISSUE INFECTION
     Dosage: 200 MG ONCE DAILY
     Route: 042
     Dates: start: 20161220, end: 20161225
  8. SEROPRAM [Concomitant]
     Active Substance: CITALOPRAM HYDROBROMIDE
     Dosage: 4 DROPS DAILY
  9. METOJECT [Concomitant]
     Active Substance: METHOTREXATE SODIUM
     Dosage: 1 AMPULE WEEKLY
  10. FLUCONAZOLE. [Concomitant]
     Active Substance: FLUCONAZOLE
     Dosage: 200MG X 1

REACTIONS (4)
  - Atrial fibrillation [Fatal]
  - Acute pulmonary oedema [Fatal]
  - Transient ischaemic attack [Fatal]
  - Lactic acidosis [Fatal]

NARRATIVE: CASE EVENT DATE: 20161225
